FAERS Safety Report 7644579-5 (Version None)
Quarter: 2011Q3

REPORT INFORMATION
  Report Type: 
  Country: None (occurrence: None)
  Receive Date: 20110725
  Receipt Date: 20110708
  Transmission Date: 20111222
  Serious: Yes (Hospitalization, Other)
  Sender: FDA-Public Use
  Company Number: 2011-00741

PATIENT
  Age: 71 Year
  Sex: Female

DRUGS (7)
  1. AMLODIPINE [Concomitant]
  2. MAGNESIUM (MAGNESIUM GLYCEROPHOSPHATE) (UNKNOWN) [Concomitant]
  3. BENDROFLUMETHIAZIDE (UNKNOWN) [Concomitant]
  4. CALCIUM CARBONATE + CHOLECALCIFEROL + CHOLECALCIFEROL CONCENTRATE + VI [Concomitant]
  5. ENALAPRIL (UNKNOWN) [Concomitant]
  6. SIMVASTATIN [Suspect]
     Indication: PRODUCT USED FOR UNKNOWN INDICATION
     Dosage: 80 MG (80 MG, 1 IN 1 D), ORAL
     Route: 048
     Dates: start: 20110501
  7. ACETAMINOPHEN [Concomitant]

REACTIONS (3)
  - RENAL IMPAIRMENT [None]
  - FALL [None]
  - RHABDOMYOLYSIS [None]
